FAERS Safety Report 16784967 (Version 1)
Quarter: 2019Q3

REPORT INFORMATION
  Report Type: Spontaneous
  Country: US (occurrence: US)
  Receive Date: 20190909
  Receipt Date: 20190909
  Transmission Date: 20191005
  Serious: Yes (Life-Threatening, Hospitalization)
  Sender: FDA-Public Use
  Company Number: US-PERRIGO-19US010826

PATIENT
  Age: 26 Year
  Sex: Female

DRUGS (1)
  1. LOPERAMIDE HYDROCHLORIDE. [Suspect]
     Active Substance: LOPERAMIDE HYDROCHLORIDE
     Indication: DRUG ABUSE
     Dosage: 80-120 MG, DAILY
     Route: 048

REACTIONS (2)
  - Cardiotoxicity [Recovered/Resolved]
  - Overdose [Recovered/Resolved]
